FAERS Safety Report 12763665 (Version 1)
Quarter: 2016Q3

REPORT INFORMATION
  Report Type: Spontaneous
  Country: IN (occurrence: IN)
  Receive Date: 20160920
  Receipt Date: 20160920
  Transmission Date: 20161109
  Serious: Yes (Hospitalization)
  Sender: FDA-Public Use
  Company Number: IN-UNICHEM LABORATORIES LIMITED-UCM201609-000208

PATIENT
  Age: 36 Year
  Sex: Male

DRUGS (3)
  1. AMITRIPTYLINE [Suspect]
     Active Substance: AMITRIPTYLINE
     Indication: MIGRAINE
  2. ONDANSETRON [Suspect]
     Active Substance: ONDANSETRON
  3. DIVALPROEX SODIUM. [Suspect]
     Active Substance: DIVALPROEX SODIUM
     Indication: MIGRAINE

REACTIONS (3)
  - Serotonin syndrome [Recovered/Resolved]
  - Pleocytosis [Recovered/Resolved]
  - Encephalopathy [Recovered/Resolved]
